FAERS Safety Report 18223914 (Version 9)
Quarter: 2020Q4

REPORT INFORMATION
  Report Type: Report from Study
  Country: US (occurrence: US)
  Receive Date: 20200902
  Receipt Date: 20201215
  Transmission Date: 20210113
  Serious: Yes (Hospitalization, Other)
  Sender: FDA-Public Use
  Company Number: NVSC2020US234368

PATIENT
  Age: 35 Year
  Sex: Male

DRUGS (1)
  1. ADAKVEO [Suspect]
     Active Substance: CRIZANLIZUMAB-TMCA
     Indication: SICKLE CELL DISEASE
     Dosage: UNK, QMO
     Route: 042
     Dates: start: 202004

REACTIONS (12)
  - Renal impairment [Unknown]
  - Feeling hot [Unknown]
  - Thyroid disorder [Unknown]
  - Weight decreased [Unknown]
  - Pain [Unknown]
  - Pain in extremity [Unknown]
  - Hyperthyroidism [Unknown]
  - Product dose omission issue [Unknown]
  - Asthenia [Unknown]
  - Sickle cell anaemia with crisis [Unknown]
  - Paraesthesia [Unknown]
  - Pruritus [Unknown]

NARRATIVE: CASE EVENT DATE: 202004
